FAERS Safety Report 15407908 (Version 2)
Quarter: 2018Q4

REPORT INFORMATION
  Report Type: Report from Study
  Country: US (occurrence: US)
  Receive Date: 20180920
  Receipt Date: 20181029
  Transmission Date: 20190204
  Serious: Yes (Hospitalization, Other)
  Sender: FDA-Public Use
  Company Number: US-JNJFOC-20180727782

PATIENT
  Age: 67 Year
  Sex: Male

DRUGS (3)
  1. IMBRUVICA [Suspect]
     Active Substance: IBRUTINIB
     Indication: CHRONIC LYMPHOCYTIC LEUKAEMIA
     Route: 048
     Dates: start: 20180706, end: 201808
  2. IMBRUVICA [Suspect]
     Active Substance: IBRUTINIB
     Indication: CHRONIC LYMPHOCYTIC LEUKAEMIA
     Route: 048
  3. VORICONAZOLE. [Concomitant]
     Active Substance: VORICONAZOLE

REACTIONS (5)
  - Feeding disorder [Unknown]
  - Benign prostatic hyperplasia [Unknown]
  - Post procedural complication [Unknown]
  - Infection [Unknown]
  - Dysphagia [Unknown]

NARRATIVE: CASE EVENT DATE: 201807
